FAERS Safety Report 8896437 (Version 1)
Quarter: 2012Q4

REPORT INFORMATION
  Report Type: Spontaneous
  Country: US (occurrence: None)
  Receive Date: 20121107
  Receipt Date: 20121107
  Transmission Date: 20130627
  Serious: Yes (Other)
  Sender: FDA-Public Use
  Company Number: None

PATIENT
  Age: 40 Year
  Sex: Female
  Weight: 62.6 kg

DRUGS (1)
  1. KENALOG [Suspect]
     Indication: EXPOSURE TO POISON IVY
     Dosage: 60 mg Once
     Dates: start: 20120628, end: 20120628

REACTIONS (4)
  - Injection site reaction [None]
  - Menstruation irregular [None]
  - Menorrhagia [None]
  - Arthralgia [None]
